FAERS Safety Report 14597434 (Version 1)
Quarter: 2018Q1

REPORT INFORMATION
  Report Type: Spontaneous
  Country: US (occurrence: US)
  Receive Date: 20180305
  Receipt Date: 20180305
  Transmission Date: 20180509
  Serious: Yes (Hospitalization)
  Sender: FDA-Public Use
  Company Number: US-ROCHE-2078808

PATIENT
  Age: 54 Year
  Sex: Male
  Weight: 147.55 kg

DRUGS (1)
  1. OCREVUS [Suspect]
     Active Substance: OCRELIZUMAB
     Indication: PRIMARY PROGRESSIVE MULTIPLE SCLEROSIS
     Dosage: ON 03/APR/2017, THE PATIENT WAS PRESCRIBED WITH INTRAVENOUS OCRELIZUMAB INFUSION ON DAY 1 AND DAY 15
     Route: 042
     Dates: start: 201706

REACTIONS (6)
  - Localised infection [Recovering/Resolving]
  - Discomfort [Unknown]
  - Dysstasia [Not Recovered/Not Resolved]
  - Muscular weakness [Not Recovered/Not Resolved]
  - Pyoderma gangrenosum [Recovering/Resolving]
  - Gait inability [Not Recovered/Not Resolved]

NARRATIVE: CASE EVENT DATE: 20170704
